FAERS Safety Report 13337134 (Version 1)
Quarter: 2017Q1

REPORT INFORMATION
  Report Type: Spontaneous
  Country: US (occurrence: US)
  Receive Date: 20170314
  Receipt Date: 20170314
  Transmission Date: 20170428
  Serious: Yes (Disabling)
  Sender: FDA-Public Use
  Company Number: None

PATIENT
  Age: 59 Year
  Sex: Male
  Weight: 102.6 kg

DRUGS (46)
  1. VITAMIN C [Concomitant]
     Active Substance: ASCORBIC ACID
  2. ASPIRIN. [Concomitant]
     Active Substance: ASPIRIN
  3. ARGININE [Concomitant]
     Active Substance: ARGININE
  4. CHOLINE [Concomitant]
     Active Substance: CHOLINE
  5. BETACAROTENE [Concomitant]
     Active Substance: .BETA.-CAROTENE
  6. GINGKO BILOBA [Concomitant]
     Active Substance: GINKGO
  7. VITAMIN B COMPLEX [Concomitant]
     Active Substance: CYANOCOBALAMIN\DEXPANTHENOL\NIACINAMIDE\PYRIDOXINE HYDROCHLORIDE\RIBOFLAVIN 5^-PHOSPHATE SODIUM\THIAMINE HYDROCHLORIDE\VITAMIN B COMPLEX
  8. TRIBULUS TERRESTRIS [Concomitant]
  9. CRANBERRY. [Concomitant]
     Active Substance: CRANBERRY
  10. ORNITHINE [Concomitant]
     Active Substance: ORNITHINE
  11. VITAMIN D3 [Concomitant]
     Active Substance: CHOLECALCIFEROL
  12. VITAMIN B12 [Concomitant]
     Active Substance: CYANOCOBALAMIN
  13. BIOTIN [Concomitant]
     Active Substance: BIOTIN
  14. PINE POLLEN [Concomitant]
  15. CISTANCHE [Concomitant]
  16. MIXED TOCOPHEROLS [Concomitant]
  17. 5HTP [Concomitant]
  18. LIONS MANE MUSHROOM [Concomitant]
  19. MK-7 [Concomitant]
  20. MACA [Concomitant]
  21. CREATINE POWDER [Concomitant]
  22. PABA [Concomitant]
     Active Substance: AMINOBENZOIC ACID
  23. CINNAMON. [Concomitant]
     Active Substance: CINNAMON
  24. ZINC. [Concomitant]
     Active Substance: ZINC
  25. TONGKAT ALI [Concomitant]
  26. VITAMIN K [Concomitant]
     Active Substance: PHYTONADIONE
  27. SOD [Concomitant]
  28. MAGNESIUM [Concomitant]
     Active Substance: MAGNESIUM
  29. CAL-MAG-ZINC [Concomitant]
  30. BUTEA SUPERBA [Concomitant]
  31. PHOSPHATIDYLSERINE [Concomitant]
  32. BURDOCK ROOT [Concomitant]
  33. TESTOSTERONE. [Concomitant]
     Active Substance: TESTOSTERONE
  34. CIALIS [Concomitant]
     Active Substance: TADALAFIL
  35. GRAPE SEED WITH RESVERATROL [Concomitant]
  36. GOTU KOLA [Concomitant]
     Active Substance: GOTU KOLA
  37. FINASTERIDE. [Suspect]
     Active Substance: FINASTERIDE
     Indication: PROSTATOMEGALY
     Dosage: ?          QUANTITY:30 TABLET(S);?
     Route: 048
     Dates: start: 20160819, end: 20160912
  38. METFORMIN [Concomitant]
     Active Substance: METFORMIN HYDROCHLORIDE
  39. ADVIL [Concomitant]
     Active Substance: IBUPROFEN
  40. COQ10 [Concomitant]
     Active Substance: UBIDECARENONE
  41. DHEA [Concomitant]
     Active Substance: PRASTERONE
  42. MELATONIN [Concomitant]
     Active Substance: MELATONIN
  43. NIACINAMIDE [Concomitant]
     Active Substance: NIACINAMIDE
  44. HORNY GOAT WEED [Concomitant]
  45. ASHWAGANDHA [Concomitant]
     Active Substance: HERBALS
  46. SORGHUM [Concomitant]

REACTIONS (5)
  - Fatigue [None]
  - Asthenia [None]
  - Depression [None]
  - Loss of libido [None]
  - Suicidal ideation [None]

NARRATIVE: CASE EVENT DATE: 20160912
